FAERS Safety Report 24875676 (Version 1)
Quarter: 2025Q1

REPORT INFORMATION
  Report Type: Spontaneous
  Country: US (occurrence: US)
  Receive Date: 20250122
  Receipt Date: 20250122
  Transmission Date: 20250409
  Serious: Yes (Other)
  Sender: SANDOZ
  Company Number: US-SANDOZ-SDZ2025US003470

PATIENT
  Sex: Female

DRUGS (1)
  1. TRIAMCINOLONE ACETONIDE [Suspect]
     Active Substance: TRIAMCINOLONE ACETONIDE
     Indication: Product used for unknown indication
     Dosage: TWICE A DAY FOR THREE DAYS THEN OFF FOR THREE DAYS
     Route: 061

REACTIONS (3)
  - Drainage [Unknown]
  - Personal relationship issue [Unknown]
  - Pain [Unknown]
